FAERS Safety Report 14073522 (Version 2)
Quarter: 2017Q4

REPORT INFORMATION
  Report Type: Spontaneous
  Country: DK (occurrence: DK)
  Receive Date: 20171011
  Receipt Date: 20171019
  Transmission Date: 20180321
  Serious: Yes (Other)
  Sender: FDA-Public Use
  Company Number: DK-MYLANLABS-2017M1063250

PATIENT
  Sex: Female

DRUGS (2)
  1. KENALOG [Suspect]
     Active Substance: TRIAMCINOLONE ACETONIDE
     Indication: PAIN
     Dosage: DOSIS: VARIERENDE
     Dates: start: 201506, end: 20150702
  2. LIDOCAINE. [Suspect]
     Active Substance: LIDOCAINE
     Indication: PAIN
     Dosage: DOSIS: VARIERENDE
     Dates: start: 201506, end: 20150702

REACTIONS (6)
  - Tendon disorder [Unknown]
  - Impaired work ability [Unknown]
  - Scar [Unknown]
  - Skin texture abnormal [Unknown]
  - Skin atrophy [Unknown]
  - Injection site necrosis [Unknown]
